FAERS Safety Report 9838917 (Version 2)
Quarter: 2014Q1

REPORT INFORMATION
  Report Type: Spontaneous
  Country: US (occurrence: US)
  Receive Date: 20140123
  Receipt Date: 20140307
  Transmission Date: 20141002
  Serious: Yes (Other)
  Sender: FDA-Public Use
  Company Number: US-BRISTOL-MYERS SQUIBB COMPANY-20008207

PATIENT
  Age: 59 Year
  Sex: Male

DRUGS (12)
  1. COUMADIN [Suspect]
     Indication: DEEP VEIN THROMBOSIS
     Dates: start: 20131011
  2. LOVENOX [Suspect]
     Indication: DEEP VEIN THROMBOSIS
     Dates: start: 20131011
  3. VOTRIENT [Suspect]
     Indication: NEOPLASM MALIGNANT
     Dosage: TABS
  4. TRABECTEDIN [Concomitant]
  5. MULTIVITAMINS [Concomitant]
  6. CALCIUM + VITAMIN D [Concomitant]
  7. PARACETAMOL [Concomitant]
  8. FISH OIL [Concomitant]
  9. RANITIDINE HCL [Concomitant]
  10. SENNA [Concomitant]
  11. METAMUCIL [Concomitant]
  12. PROCHLORPERAZINE [Concomitant]

REACTIONS (7)
  - Haematemesis [Recovered/Resolved]
  - Fatigue [Recovered/Resolved]
  - Vomiting [Recovered/Resolved]
  - Abdominal pain [Recovered/Resolved]
  - Haematuria [Recovered/Resolved]
  - Muscle spasms [Recovered/Resolved]
  - International normalised ratio increased [Unknown]
